FAERS Safety Report 5035435-X (Version None)
Quarter: 2006Q2

REPORT INFORMATION
  Report Type: 
  Country: None (occurrence: None)
  Receive Date: 20060526
  Receipt Date: 20060224
  Transmission Date: 20061013
  Serious: No
  Sender: FDA-Public Use
  Company Number: FABR-11415

PATIENT
  Age: 42 Year
  Sex: Female
  Weight: 118.8424 kg

DRUGS (11)
  1. FABRAZYME [Suspect]
     Indication: FABRY'S DISEASE
     Dosage: 60 MG QWK IV
     Route: 042
     Dates: start: 20051028
  2. LISINOPRIL [Concomitant]
  3. HYDROCHLOROTHIAZIDE [Concomitant]
  4. ZETIA [Concomitant]
  5. ASPIRIN [Concomitant]
  6. NEURONTIN [Concomitant]
  7. ULTRAM [Concomitant]
  8. CYMBALTA [Concomitant]
  9. TRAZODONE HCL [Concomitant]
  10. IBUPROFEN [Concomitant]
  11. BENADRYL [Concomitant]

REACTIONS (2)
  - DIARRHOEA [None]
  - PARAESTHESIA [None]
